FAERS Safety Report 8298803-9 (Version None)
Quarter: 2012Q2

REPORT INFORMATION
  Report Type: 
  Country: None (occurrence: None)
  Receive Date: 20120416
  Receipt Date: 20120416
  Transmission Date: 20120825
  Serious: No
  Sender: FDA-Public Use
  Company Number: None

PATIENT
  Age: 80 Year
  Sex: Male

DRUGS (2)
  1. DOXYCYCLINE [Concomitant]
  2. AUGMENTIN '125' [Suspect]
     Dates: start: 20080207, end: 20080216

REACTIONS (7)
  - CHOLELITHIASIS [None]
  - DIARRHOEA [None]
  - DRUG INTOLERANCE [None]
  - CONFUSIONAL STATE [None]
  - HEPATITIS CHOLESTATIC [None]
  - LIVER DISORDER [None]
  - CYST [None]
